FAERS Safety Report 13531235 (Version 5)
Quarter: 2017Q3

REPORT INFORMATION
  Report Type: Spontaneous
  Country: US (occurrence: US)
  Receive Date: 20170510
  Receipt Date: 20170811
  Transmission Date: 20171127
  Serious: Yes (Other)
  Sender: FDA-Public Use
  Company Number: US-PFIZER INC-2016572787

PATIENT
  Age: 62 Year
  Sex: Male
  Weight: 95.25 kg

DRUGS (67)
  1. LYRICA [Suspect]
     Active Substance: PREGABALIN
     Dosage: 50 MG, 1X/DAY
     Route: 048
     Dates: start: 201610
  2. LYRICA [Suspect]
     Active Substance: PREGABALIN
     Dosage: 50 MG, 1X/DAY (AT NIGHT)
  3. MORPHINE SULFATE ER [Concomitant]
     Active Substance: MORPHINE SULFATE
     Dosage: 60 MG, 3X/DAY(TOTAL OF 3 A DAY)
     Route: 048
     Dates: start: 20130410
  4. FUROSEMIDE. [Concomitant]
     Active Substance: FUROSEMIDE
     Dosage: 80 MG, DAILY
     Route: 048
     Dates: start: 20160711
  5. POTASSIUM CHLORIDE CRYS ER [Concomitant]
     Active Substance: POTASSIUM CHLORIDE
     Dosage: 20 MEQ, 2X/DAY
     Route: 048
     Dates: start: 20160711
  6. LORATADINE. [Concomitant]
     Active Substance: LORATADINE
     Dosage: 10 MG, 1X/DAY, (TAKE 1 TABLET AT BEDTIME)
     Route: 048
     Dates: start: 20160310
  7. PAXIL [Concomitant]
     Active Substance: PAROXETINE HYDROCHLORIDE
     Indication: DEPRESSION
     Dosage: 40 MG, 1X/DAY (1 A DAY IN AM)
  8. CELEBREX [Concomitant]
     Active Substance: CELECOXIB
     Dosage: 200 MG, UNK (1,2X A DAY)
  9. LIDOCAINE. [Concomitant]
     Active Substance: LIDOCAINE
     Indication: CHEST PAIN
  10. FOLIC ACID. [Concomitant]
     Active Substance: FOLIC ACID
     Dosage: 1 DF, DAILY
     Route: 048
     Dates: start: 20100604
  11. OMEGA 3 [Concomitant]
     Active Substance: OMEGA-3 FATTY ACIDS
     Dosage: 2000 MG, DAILY, (TAKE 2 CAPSULES DAILY)
     Route: 048
  12. SELENIUM [Concomitant]
     Active Substance: SELENIUM
     Dosage: 200 UG, UNK, (ONE TABLET EVERY OTHER DAY)
     Route: 048
     Dates: start: 20100604
  13. VITAMIN C [Concomitant]
     Active Substance: ASCORBIC ACID
     Dosage: 1000 MG, 3X/DAY
     Route: 048
     Dates: start: 20100604
  14. LYRICA [Suspect]
     Active Substance: PREGABALIN
     Indication: NEUROPATHY PERIPHERAL
     Dosage: 300 MG, 2X/DAY
  15. MORPHINE SULFATE ER [Concomitant]
     Active Substance: MORPHINE SULFATE
     Dosage: 60 MG, UNK (1,3X A DAY)
     Route: 048
  16. OXYCODONE [Concomitant]
     Active Substance: OXYCODONE
     Dosage: 60 MG, AS NEEDED, (TAKE 2 TABLETS EVERY 4 HOURS AS NEEDED)
     Route: 048
     Dates: start: 20170405
  17. GABAPENTIN. [Concomitant]
     Active Substance: GABAPENTIN
     Indication: PAIN IN EXTREMITY
     Dosage: 100 MG, UNK
  18. VOLTAREN [Concomitant]
     Active Substance: DICLOFENAC SODIUM
     Dosage: UNK, (RUB IN TO AFFECTED JOINT AS DIRECTED 3-4X PER DAY)
     Route: 062
     Dates: start: 20100604
  19. MAALOX ANTACID [Concomitant]
     Active Substance: ALUMINUM HYDROXIDE\DIMETHICONE\MAGNESIUM HYDROXIDE
     Indication: GASTROOESOPHAGEAL REFLUX DISEASE
     Dosage: 100 ML, AS NEEDED
  20. LEVOTHYROXINE SODIUM. [Concomitant]
     Active Substance: LEVOTHYROXINE SODIUM
     Dosage: 50 UG, DAILY (1 TABLET DAILY-IN THE MORNING ON AN EMPTY STOMACH)
     Route: 048
     Dates: start: 20130410
  21. VITAMIN D [Concomitant]
     Active Substance: CHOLECALCIFEROL
     Dosage: 1000 IU, DAILY
     Dates: start: 20100604
  22. POTASSIUM [Concomitant]
     Active Substance: POTASSIUM
     Dosage: UNK
  23. LYRICA [Suspect]
     Active Substance: PREGABALIN
     Indication: PAIN
     Dosage: 150 MG, 2X/DAY (TWICE A DAY ONE IN THE AM AND ONE IN THE PM)
     Route: 048
  24. WARFARIN [Concomitant]
     Active Substance: WARFARIN
     Dosage: 7.5 MG, DAILY, (TAKE ONE TABLET BY MOUTH EVERY DAY)
     Route: 048
     Dates: start: 20100604
  25. POTASSIUM CHLORIDE CRYS ER [Concomitant]
     Active Substance: POTASSIUM CHLORIDE
     Dosage: 20 MEQ, 2X/DAY (2 A DAY IN PM WITH DINNER)
  26. LIDODERM [Concomitant]
     Active Substance: LIDOCAINE
     Dosage: 5 %, 1X/DAY
     Dates: start: 20100604
  27. BENADRYL [Concomitant]
     Active Substance: DIPHENHYDRAMINE HYDROCHLORIDE
     Indication: GASTROOESOPHAGEAL REFLUX DISEASE
     Dosage: 100 ML, AS NEEDED
  28. BENADRYL [Concomitant]
     Active Substance: DIPHENHYDRAMINE HYDROCHLORIDE
     Indication: CHEST PAIN
  29. CALCIUM CITRATE + D [Concomitant]
     Dosage: 4 DF, DAILY, (CALCIUM CITRATE-300 MG) (COLECALCIFEROL-100 MG), (TAKE 4 DAILY)
     Dates: start: 20100604
  30. VENLAFAXINE HCL [Concomitant]
     Active Substance: VENLAFAXINE HYDROCHLORIDE
     Dosage: 75 MG, 3X/DAY
     Route: 048
     Dates: start: 20150427
  31. LYRICA [Suspect]
     Active Substance: PREGABALIN
     Dosage: 200 MG, UNK
     Route: 048
  32. LORATADINE. [Concomitant]
     Active Substance: LORATADINE
     Indication: HYPERSENSITIVITY
     Dosage: 10 MG, AS NEEDED (A DAY IN PM AT BEDTIME)
     Route: 048
  33. PRINIVIL [Concomitant]
     Active Substance: LISINOPRIL
     Indication: HYPERTENSION
     Dosage: 20 MG, 1X/DAY (1 A DAY IN AM)
  34. BACLOFEN. [Concomitant]
     Active Substance: BACLOFEN
     Dosage: 20 MG, 3X/DAY (3 TABS 3 TIMES A DAY)
     Route: 048
  35. LEVOTHYROXINE. [Concomitant]
     Active Substance: LEVOTHYROXINE
     Indication: THYROID DISORDER
     Dosage: 50 UG, 1X/DAY (1 A DAY IN AM)
  36. VOLTAREN [Concomitant]
     Active Substance: DICLOFENAC SODIUM
     Dosage: 100 G TUBE, 4 TUBES PER MO, APPLY EVERY 2 HOURS
  37. LIDOCAINE. [Concomitant]
     Active Substance: LIDOCAINE
     Indication: GASTROOESOPHAGEAL REFLUX DISEASE
     Dosage: 100 ML, AS NEEDED
  38. FLUTICASONE PROPIONATE. [Concomitant]
     Active Substance: FLUTICASONE PROPIONATE
     Dosage: 50 UG, 1X/DAY, (INHALE TWO SPRAYS IN EACH NOSTRIL EVERY BEDTIME)
     Route: 045
     Dates: start: 20160502
  39. LISINOPRIL. [Concomitant]
     Active Substance: LISINOPRIL
     Dosage: 20 MG, DAILY
     Route: 048
     Dates: start: 20100604
  40. POLYETHYLENE GLYCOL 3350. [Concomitant]
     Active Substance: POLYETHYLENE GLYCOL 3350
     Dosage: UNK UNK, 1X/DAY
     Dates: start: 20100604
  41. LYRICA [Suspect]
     Active Substance: PREGABALIN
     Dosage: 150 MG, 2X/DAY (ONE IN THE AM AND ONE IN THE PM)
     Route: 048
     Dates: start: 2017
  42. FUROSEMIDE. [Concomitant]
     Active Substance: FUROSEMIDE
     Indication: NEUROPATHY PERIPHERAL
     Dosage: 40 MG (WATER PILL), 2X/DAY (2 A DAY IN AM)
     Route: 048
  43. LORATADINE. [Concomitant]
     Active Substance: LORATADINE
     Indication: SINUSITIS
     Dosage: 10 MG, 1X/DAY
  44. BACLOFEN. [Concomitant]
     Active Substance: BACLOFEN
     Dosage: 30 MG, 3X/DAY
     Route: 048
     Dates: start: 20161227
  45. PREVACID [Concomitant]
     Active Substance: LANSOPRAZOLE
     Dosage: 30 MG, UNK (1, 2X A DAY)
  46. LYRICA [Suspect]
     Active Substance: PREGABALIN
     Dosage: 300 MG, 2X/DAY
     Route: 048
     Dates: start: 20161130
  47. LYRICA [Suspect]
     Active Substance: PREGABALIN
     Dosage: UNK, (AD 50 MG TO CURRENT 150 BID DOSE TO FIND IDEAL DOSE- UP TO MAX OF 300 MG BID)
  48. LYRICA [Suspect]
     Active Substance: PREGABALIN
     Dosage: 300 MG, 2X/DAY
     Route: 048
     Dates: end: 201611
  49. OXYCODONE [Concomitant]
     Active Substance: OXYCODONE
     Dosage: 30 MG IR, UNK (2,6X A DAY) (2 EVERY 4 HOURS/1 EVERY 2 HOURS)
     Route: 048
  50. OXYCODONE [Concomitant]
     Active Substance: OXYCODONE
     Dosage: 30 UNK, UNK (TOTAL OF 12 OF THE OXYCODONE DAILY)
     Route: 048
  51. EFFEXOR [Concomitant]
     Active Substance: VENLAFAXINE HYDROCHLORIDE
     Indication: INSOMNIA
     Dosage: 75 MG, 3X/DAY (3 A DAY 3 HRS BEFORE BEDTIME)
  52. WARFARIN [Concomitant]
     Active Substance: WARFARIN
     Indication: ATRIAL FIBRILLATION
     Dosage: 7.5 MG, 1X/DAY (1 A DAY IN PM WITH DINNER)
     Dates: start: 20100113
  53. MAALOX ANTACID [Concomitant]
     Active Substance: ALUMINUM HYDROXIDE\DIMETHICONE\MAGNESIUM HYDROXIDE
     Indication: CHEST PAIN
  54. COLCHICINE. [Concomitant]
     Active Substance: COLCHICINE
     Dosage: UNK UNK, AS NEEDED, (ONCE IN A WHILE AS NEEDED)
     Route: 048
  55. PAROXETINE HCL [Concomitant]
     Active Substance: PAROXETINE HYDROCHLORIDE
     Dosage: 40 MG, DAILY, (TAKE ONE TABLET BY MOUTH EVERY DAY)
     Route: 048
     Dates: start: 20100604
  56. SUPER B COMPLEX [Concomitant]
     Active Substance: CYANOCOBALAMIN\DEXPANTHENOL\NIACINAMIDE\PYRIDOXINE HYDROCHLORIDE\RIBOFLAVIN 5^-PHOSPHATE SODIUM\THIAMINE HYDROCHLORIDE\VITAMIN B COMPLEX
     Dosage: 1 DF, DAILY
     Dates: start: 20100604
  57. VIAGRA [Concomitant]
     Active Substance: SILDENAFIL CITRATE
     Dosage: 100 MG, UNK, (TAKE AS DIRECTED)
     Route: 048
     Dates: start: 20120925
  58. ZINC. [Concomitant]
     Active Substance: ZINC
     Dosage: 50 MG, ALTERNATE DAY (ONE EVERY OTHER DAY)
     Route: 048
     Dates: start: 20100604
  59. LYRICA [Suspect]
     Active Substance: PREGABALIN
     Dosage: UNK UNK, (150MG IN THE MORNING AND THEN SEVERAL HOURS LATER TAKING THE 50MG)
  60. GABAPENTIN. [Concomitant]
     Active Substance: GABAPENTIN
     Indication: NEUROPATHY PERIPHERAL
     Dosage: 300 MG, UNK (2,3X A DAY, BEEN TAKING 6-8 A DAY)
  61. BACLOFEN. [Concomitant]
     Active Substance: BACLOFEN
     Indication: MUSCLE RELAXANT THERAPY
     Dosage: 20 MG, 3X/DAY (3,3X A DAY)
     Dates: start: 20041020
  62. CLEARLAX [Concomitant]
     Active Substance: POLYETHYLENE GLYCOL 3350
     Indication: CONSTIPATION
     Dosage: UNK, DAILY (2 TBSP OR MORE WITH DINNER, DAILY)
  63. LORATADIN [Concomitant]
     Active Substance: LORATADINE
  64. BIOTIN [Concomitant]
     Active Substance: BIOTIN
     Dosage: 5000 UG, DAILY, (TAKE 2 CAPSULE DAILY)
     Route: 048
     Dates: start: 20150727
  65. LANSOPRAZOLE. [Concomitant]
     Active Substance: LANSOPRAZOLE
     Dosage: 30 MG, 2X/DAY
     Route: 048
     Dates: start: 20100604
  66. SAW PALMETTO [Concomitant]
     Active Substance: HERBALS\SAW PALMETTO
     Dosage: 160 MG, DAILY
     Route: 048
     Dates: start: 20100604
  67. LASIX [Concomitant]
     Active Substance: FUROSEMIDE
     Dosage: UNK

REACTIONS (32)
  - Suicidal ideation [Unknown]
  - Condition aggravated [Unknown]
  - Headache [Unknown]
  - Neck pain [Unknown]
  - Oedema [Recovered/Resolved]
  - Self-injurious ideation [Unknown]
  - Decreased interest [Unknown]
  - Decreased appetite [Unknown]
  - Hyperphagia [Unknown]
  - Depression [Unknown]
  - Drug ineffective [Unknown]
  - Initial insomnia [Unknown]
  - Thirst [Unknown]
  - Weight decreased [Unknown]
  - Anxiety [Unknown]
  - Dizziness [Recovered/Resolved]
  - Intentional product use issue [Unknown]
  - Haemorrhoidal haemorrhage [Unknown]
  - Epistaxis [Unknown]
  - Skin lesion [Unknown]
  - Hypoaesthesia [Unknown]
  - Lethargy [Recovered/Resolved]
  - Pain in extremity [Unknown]
  - Hypersomnia [Unknown]
  - Feeling abnormal [Unknown]
  - Disturbance in attention [Unknown]
  - Tenderness [Unknown]
  - Dysphagia [Unknown]
  - Balance disorder [Unknown]
  - Oedema peripheral [Unknown]
  - Fatigue [Unknown]
  - Drug dose omission [Unknown]

NARRATIVE: CASE EVENT DATE: 2017
